FAERS Safety Report 8734324 (Version 2)
Quarter: 2015Q2

REPORT INFORMATION
  Report Type: Report from Study
  Country: US (occurrence: US)
  Receive Date: 20120821
  Receipt Date: 20150626
  Transmission Date: 20150821
  Serious: Yes (Other)
  Sender: FDA-Public Use
  Company Number: US-ROCHE-1101244

PATIENT
  Age: 58 Year
  Sex: Female

DRUGS (10)
  1. PROVENTIL [Concomitant]
     Active Substance: ALBUTEROL
  2. DEMEROL [Concomitant]
     Active Substance: MEPERIDINE HYDROCHLORIDE
  3. PREMARIN [Concomitant]
     Active Substance: ESTROGENS, CONJUGATED
  4. ATROVENT [Concomitant]
     Active Substance: IPRATROPIUM BROMIDE
  5. ACTIVASE [Suspect]
     Active Substance: ALTEPLASE
     Indication: ACUTE MYOCARDIAL INFARCTION
     Route: 065
  6. TAGAMET [Concomitant]
     Active Substance: CIMETIDINE
  7. SLO-PHYLLIN [Concomitant]
     Active Substance: THEOPHYLLINE ANHYDROUS
  8. NITROGLYCERIN. [Concomitant]
     Active Substance: NITROGLYCERIN
     Route: 042
  9. VENTOLIN [Concomitant]
     Active Substance: ALBUTEROL SULFATE
  10. AMITRIPTYLINE [Concomitant]
     Active Substance: AMITRIPTYLINE

REACTIONS (2)
  - Pulmonary embolism [Unknown]
  - Pleurisy [Unknown]
